FAERS Safety Report 23061603 (Version 1)
Quarter: 2023Q4

REPORT INFORMATION
  Report Type: Spontaneous
  Country: US (occurrence: US)
  Receive Date: 20231013
  Receipt Date: 20231013
  Transmission Date: 20240110
  Serious: No
  Sender: FDA-Public Use
  Company Number: US-SA-SAC20231011001828

PATIENT
  Sex: Female
  Weight: 68 kg

DRUGS (2)
  1. DUPIXENT [Suspect]
     Active Substance: DUPILUMAB
     Indication: Dermatitis atopic
     Dosage: 300 MG, EVERY 2 WEEK
     Route: 058
     Dates: start: 2019
  2. ECZEMA RELIEF [Concomitant]
     Active Substance: ALLANTOIN\OATMEAL
     Dosage: UNK

REACTIONS (1)
  - Illness [Unknown]
